FAERS Safety Report 5718031-8 (Version None)
Quarter: 2008Q2

REPORT INFORMATION
  Report Type: 
  Country: None (occurrence: None)
  Receive Date: 20080425
  Receipt Date: 20080418
  Transmission Date: 20081010
  Serious: Yes (Hospitalization)
  Sender: FDA-Public Use
  Company Number: US-ASTRAZENECA-2008UW08014

PATIENT

DRUGS (1)
  1. SEROQUEL [Suspect]
     Route: 064

REACTIONS (1)
  - PULMONARY HYPERTENSION [None]
